FAERS Safety Report 8035417 (Version 5)
Quarter: 2015Q3

REPORT INFORMATION
  Report Type: Report from Study
  Country: JP (occurrence: JP)
  Receive Date: 20110714
  Receipt Date: 20150713
  Transmission Date: 20151125
  Serious: Yes (Other)
  Sender: FDA-Public Use
  Company Number: JP-JNJFOC-20110703403

PATIENT
  Age: 39 Year
  Sex: Male

DRUGS (10)
  1. BETAMETHASONE DIPROPIONATE. [Concomitant]
     Active Substance: BETAMETHASONE DIPROPIONATE
     Indication: PSORIASIS
     Route: 061
     Dates: start: 20100330
  2. STELARA [Suspect]
     Active Substance: USTEKINUMAB
     Indication: PSORIASIS
     Route: 058
     Dates: start: 20110607, end: 20110705
  3. STELARA [Suspect]
     Active Substance: USTEKINUMAB
     Indication: PSORIASIS
     Route: 058
     Dates: start: 20140307, end: 20140307
  4. ISONIAZID. [Suspect]
     Active Substance: ISONIAZID
     Indication: PROPHYLAXIS
     Dates: start: 20110426, end: 20110705
  5. PYRIDOXAL PHOSPHATE [Concomitant]
     Active Substance: PYRIDOXAL PHOSPHATE
     Indication: PROPHYLAXIS
     Route: 048
     Dates: end: 20110705
  6. BETAMETHASONE BUTYRATE PROPIONATE [Concomitant]
     Active Substance: BETAMETHASONE BUTYRATE PROPIONATE
     Indication: PSORIASIS
     Route: 061
     Dates: start: 20100330
  7. LOCOIDON [Concomitant]
     Active Substance: HYDROCORTISONE BUTYRATE
     Indication: PSORIASIS
     Route: 061
     Dates: start: 20100330
  8. STELARA [Suspect]
     Active Substance: USTEKINUMAB
     Indication: PSORIASIS
     Route: 058
     Dates: start: 20130907, end: 20130907
  9. DOVONEX [Concomitant]
     Active Substance: CALCIPOTRIENE
     Indication: PSORIASIS
     Route: 061
     Dates: start: 20100330
  10. STELARA [Suspect]
     Active Substance: USTEKINUMAB
     Indication: PSORIASIS
     Route: 058
     Dates: start: 20131207, end: 20131207

REACTIONS (1)
  - Hepatic function abnormal [Recovered/Resolved]

NARRATIVE: CASE EVENT DATE: 20110705
